FAERS Safety Report 16500646 (Version 4)
Quarter: 2019Q3

REPORT INFORMATION
  Report Type: Spontaneous
  Country: CA (occurrence: CA)
  Receive Date: 20190701
  Receipt Date: 20190725
  Transmission Date: 20191004
  Serious: Yes (Other)
  Sender: FDA-Public Use
  Company Number: CA-PFIZER INC-2019189064

PATIENT
  Age: 78 Year
  Sex: Male

DRUGS (1)
  1. XELJANZ [Suspect]
     Active Substance: TOFACITINIB CITRATE
     Indication: COLITIS ULCERATIVE
     Dosage: 10 MG, 2X/DAY
     Route: 048
     Dates: start: 20190416, end: 201906

REACTIONS (12)
  - Fatigue [Not Recovered/Not Resolved]
  - Flatulence [Unknown]
  - Nasopharyngitis [Unknown]
  - Tremor [Unknown]
  - Conjunctivitis [Not Recovered/Not Resolved]
  - Pneumonia [Recovering/Resolving]
  - Diabetes mellitus [Unknown]
  - Pain [Unknown]
  - Cough [Unknown]
  - Influenza like illness [Unknown]
  - Confusional state [Unknown]
  - Irritability [Unknown]

NARRATIVE: CASE EVENT DATE: 2019
